FAERS Safety Report 20585445 (Version 1)
Quarter: 2022Q1

REPORT INFORMATION
  Report Type: Spontaneous
  Country: US (occurrence: US)
  Receive Date: 20220312
  Receipt Date: 20220312
  Transmission Date: 20220423
  Serious: No
  Sender: FDA-Public Use
  Company Number: US-NOVARTISTESTPH-NVSC2022US057639

PATIENT

DRUGS (1)
  1. XIIDRA [Suspect]
     Active Substance: LIFITEGRAST
     Indication: Product used for unknown indication
     Dosage: 1 DRP, TID (EACH EYE, TRIED FOR 2 MONTHS)
     Route: 065

REACTIONS (3)
  - Dry eye [Unknown]
  - Product after taste [Unknown]
  - Headache [Unknown]
